FAERS Safety Report 17601805 (Version 2)
Quarter: 2020Q2

REPORT INFORMATION
  Report Type: Spontaneous
  Country: US (occurrence: US)
  Receive Date: 20200330
  Receipt Date: 20200412
  Transmission Date: 20200713
  Serious: No
  Sender: FDA-Public Use
  Company Number: US-TEVA-2020-US-1212678

PATIENT
  Sex: Female

DRUGS (4)
  1. CLONAZEPAM TEVA TABLET [Suspect]
     Active Substance: CLONAZEPAM
     Indication: OESOPHAGEAL SPASM
     Route: 060
  2. CLONAZEPAM TEVA TABLET [Suspect]
     Active Substance: CLONAZEPAM
     Indication: EXTRAOCULAR MUSCLE PARESIS
     Route: 065
  3. CLONAZEPAM TEVA TABLET [Suspect]
     Active Substance: CLONAZEPAM
     Indication: ANXIETY
  4. CLONAZEPAM TEVA TABLET [Suspect]
     Active Substance: CLONAZEPAM
     Indication: MUSCLE SPASMS

REACTIONS (9)
  - Muscle twitching [Unknown]
  - Product prescribing error [Unknown]
  - Chest pain [Unknown]
  - Blood pressure fluctuation [Unknown]
  - Blood glucose fluctuation [Unknown]
  - Drug ineffective [Unknown]
  - Product use in unapproved indication [Unknown]
  - Therapeutic product effect incomplete [Unknown]
  - Off label use [Unknown]
